FAERS Safety Report 10051474 (Version 1)
Quarter: 2014Q1

REPORT INFORMATION
  Report Type: Spontaneous
  Country: US (occurrence: None)
  Receive Date: 20140328
  Receipt Date: 20140328
  Transmission Date: 20141002
  Serious: Yes (Hospitalization)
  Sender: FDA-Public Use
  Company Number: 2014-US-003541

PATIENT
  Age: 30 Year
  Sex: Female

DRUGS (14)
  1. XYREM [Suspect]
     Indication: CATAPLEXY
     Route: 048
     Dates: start: 201212
  2. XYREM [Suspect]
     Indication: NARCOLEPSY
     Route: 048
     Dates: start: 201212
  3. RITALIN (METYHLPHENIDATE HYDROCHLORIDE) [Concomitant]
  4. PROZAC (FLUOXETINE HYDROCHLORIDE) [Concomitant]
  5. SPIRONOLACTONE [Concomitant]
  6. ABILIFY (ARIPIPRAZOLE) [Concomitant]
  7. DICYCLOMINE [Concomitant]
  8. SINGULAIR (MONTELUKAST SODIUM) TABLET [Concomitant]
  9. TOPIRAMATE [Concomitant]
  10. BENADRYL (DIPHENHYDRAMINE HYDROCHLORIDE) [Concomitant]
  11. PROTONIX (PANTOPRAZOLE SODIUM ESQUIHYDRATE) [Concomitant]
  12. METFORMIN (METFORMIN HYDROCHLORIDE) [Concomitant]
  13. LYRICA (PREGABALIN) [Concomitant]
  14. MAGNESIUM [Concomitant]

REACTIONS (3)
  - Endometriosis [None]
  - Lung disorder [None]
  - Chest pain [None]
